FAERS Safety Report 4956388-6 (Version None)
Quarter: 2006Q1

REPORT INFORMATION
  Report Type: 
  Country: None (occurrence: None)
  Receive Date: 20060328
  Receipt Date: 20060328
  Transmission Date: 20060701
  Serious: Yes (Life-Threatening, Hospitalization)
  Sender: FDA-Public Use
  Company Number: None

PATIENT
  Sex: Female
  Weight: 95.2554 kg

DRUGS (14)
  1. BYETTA [Suspect]
     Indication: DIABETES MELLITUS NON-INSULIN-DEPENDENT
     Dosage: 10 MCG SQ BID
     Route: 058
     Dates: start: 20060204, end: 20060207
  2. BYETTA [Suspect]
     Indication: DIABETES MELLITUS NON-INSULIN-DEPENDENT
     Dosage: 5 MCG SQ BID
     Route: 058
     Dates: start: 20051031, end: 20060203
  3. LANTUS [Concomitant]
  4. ASPIRIN [Concomitant]
  5. PLAVIX [Concomitant]
  6. GLYBURIDE [Concomitant]
  7. COREG [Concomitant]
  8. ATACAND [Concomitant]
  9. LORAZEPAM [Concomitant]
  10. LASIX [Concomitant]
  11. PAXIL [Concomitant]
  12. POTASSIUM CHLORIDE [Concomitant]
  13. RANITIDINE [Concomitant]
  14. VITAMINS [Concomitant]

REACTIONS (6)
  - GASTRIC ULCER [None]
  - HIATUS HERNIA [None]
  - NAUSEA [None]
  - RETCHING [None]
  - UPPER GASTROINTESTINAL HAEMORRHAGE [None]
  - VOMITING [None]
